FAERS Safety Report 13373253 (Version 2)
Quarter: 2017Q2

REPORT INFORMATION
  Report Type: Spontaneous
  Country: US (occurrence: US)
  Receive Date: 20170327
  Receipt Date: 20170410
  Transmission Date: 20170830
  Serious: Yes (Hospitalization)
  Sender: FDA-Public Use
  Company Number: US-HORIZON-RAV-0088-2017

PATIENT
  Age: 5 Year
  Sex: Female

DRUGS (1)
  1. RAVICTI [Suspect]
     Active Substance: GLYCEROL PHENYLBUTYRATE
     Indication: ARGININOSUCCINATE SYNTHETASE DEFICIENCY
     Dosage: 1 ML THREE TIMES DAILY, INCREASED TO 3 ML TID
     Dates: start: 20160401

REACTIONS (7)
  - Coma [Recovered/Resolved]
  - Somnolence [Recovered/Resolved]
  - Constipation [Recovered/Resolved]
  - Somnolence [Recovered/Resolved]
  - Hyperammonaemia [Recovered/Resolved]
  - Abdominal pain upper [Recovered/Resolved]
  - Vomiting [Recovered/Resolved]

NARRATIVE: CASE EVENT DATE: 20170216
